FAERS Safety Report 7668607-6 (Version None)
Quarter: 2011Q3

REPORT INFORMATION
  Report Type: 
  Country: None (occurrence: None)
  Receive Date: 20110808
  Receipt Date: 20110808
  Transmission Date: 20111222
  Serious: Yes (Death, Other)
  Sender: FDA-Public Use
  Company Number: None

PATIENT
  Age: 31 Year
  Sex: Male
  Weight: 70 kg

DRUGS (2)
  1. SAMSCA [Suspect]
     Indication: HYPONATRAEMIA
     Dosage: 15 MG
     Route: 048
     Dates: start: 20110517, end: 20110519
  2. SAMSCA [Suspect]
     Indication: HYPERVOLAEMIA
     Dosage: 15 MG
     Route: 048
     Dates: start: 20110517, end: 20110519

REACTIONS (2)
  - BLOOD SODIUM INCREASED [None]
  - SEPSIS [None]
